FAERS Safety Report 8952040 (Version 2)
Quarter: 2012Q4

REPORT INFORMATION
  Report Type: 
  Country: CA (occurrence: CA)
  Receive Date: 20121204
  Receipt Date: 20121207
  Transmission Date: 20130627
  Serious: Yes (Death, Hospitalization, Other)
  Sender: FDA-Public Use
  Company Number: CA-ABBOTT-12P-028-0988826-00

PATIENT
  Age: 52 Year
  Sex: Female

DRUGS (3)
  1. BIAXIN [Suspect]
     Indication: BRONCHITIS
     Route: 048
     Dates: start: 20120911, end: 20120920
  2. BIAXIN [Suspect]
     Indication: PNEUMONIA
  3. CHEMOTHERAPEUTICS [Concomitant]
     Indication: CHEMOTHERAPY

REACTIONS (8)
  - Death [Fatal]
  - Pyrexia [Unknown]
  - Pneumonia [Unknown]
  - Lung neoplasm [Unknown]
  - Brain neoplasm [Unknown]
  - Nausea [Not Recovered/Not Resolved]
  - Abdominal pain [Not Recovered/Not Resolved]
  - Vomiting [Not Recovered/Not Resolved]
